FAERS Safety Report 7985913-6 (Version None)
Quarter: 2011Q4

REPORT INFORMATION
  Report Type: 
  Country: None (occurrence: None)
  Receive Date: 20111216
  Receipt Date: 20111207
  Transmission Date: 20120403
  Serious: Yes (Other)
  Sender: FDA-Public Use
  Company Number: IT-PFIZER INC-2011298264

PATIENT
  Age: 60 Year
  Sex: Male

DRUGS (1)
  1. TYGACIL [Suspect]
     Dosage: UNK

REACTIONS (3)
  - HYPERNATRAEMIA [None]
  - QUADRIPARESIS [None]
  - RHABDOMYOLYSIS [None]
